FAERS Safety Report 21928684 (Version 1)
Quarter: 2023Q1

REPORT INFORMATION
  Report Type: Spontaneous
  Country: US (occurrence: US)
  Receive Date: 20230130
  Receipt Date: 20230130
  Transmission Date: 20230418
  Serious: No
  Sender: FDA-Public Use
  Company Number: US-JNJFOC-20230159231

PATIENT
  Sex: Male

DRUGS (1)
  1. RISPERDAL M-TAB [Suspect]
     Active Substance: RISPERIDONE
     Indication: Attention deficit hyperactivity disorder
     Route: 048
     Dates: end: 2012

REACTIONS (2)
  - Gynaecomastia [Unknown]
  - Off label use [Unknown]
